FAERS Safety Report 20673201 (Version 2)
Quarter: 2022Q3

REPORT INFORMATION
  Report Type: Report from Study
  Country: CA (occurrence: CA)
  Receive Date: 20220405
  Receipt Date: 20220711
  Transmission Date: 20221026
  Serious: Yes (Other)
  Sender: FDA-Public Use
  Company Number: None

PATIENT
  Age: 45 Year
  Sex: Male

DRUGS (13)
  1. METHOTREXATE [Suspect]
     Active Substance: METHOTREXATE
     Indication: Product used for unknown indication
  2. DESOXIMETASONE [Suspect]
     Active Substance: DESOXIMETASONE
     Indication: Product used for unknown indication
  3. DEXLANSOPRAZOLE [Suspect]
     Active Substance: DEXLANSOPRAZOLE
     Indication: Product used for unknown indication
     Dosage: CAPSULE (DELAYED RELEASE)
  4. VEDOLIZUMAB [Suspect]
     Active Substance: VEDOLIZUMAB
     Indication: Colitis ulcerative
     Dosage: 1 EVERY 4 WEEKS, I.V. INFUSION
     Route: 042
  5. ANAPROX [Concomitant]
     Active Substance: NAPROXEN SODIUM
     Indication: Headache
  6. CALCIUM CARBONATE\VITAMIN D [Concomitant]
     Active Substance: CALCIUM CARBONATE\VITAMIN D
  7. FOLIC ACID [Concomitant]
     Active Substance: FOLIC ACID
     Dosage: 1 EVERY 1 WEEKS
     Route: 048
  8. MESALAMINE [Concomitant]
     Active Substance: MESALAMINE
     Dosage: TABLET( DELAYED AND EXTENDED RELEASE), 1 EVERY 1 DAYS
  9. PREDNISONE [Concomitant]
     Active Substance: PREDNISONE
     Dosage: 1 EVERY 1 DAYS
     Route: 048
  10. DEXLANSOPRAZOLE [Suspect]
     Active Substance: DEXLANSOPRAZOLE
     Indication: Product used for unknown indication
  11. VEDOLIZUMAB [Suspect]
     Active Substance: VEDOLIZUMAB
     Indication: Colitis ulcerative
     Dosage: I.V. INFUSION
     Route: 042
  12. VEDOLIZUMAB [Suspect]
     Active Substance: VEDOLIZUMAB
     Indication: Colitis ulcerative
     Dosage: POWDER FOR SOLUTION INTRAVENOUS,  I.V. INFUSION
     Route: 042
  13. MESALAMINE [Concomitant]
     Active Substance: MESALAMINE
     Dosage: 1 EVERY 1 DAYS

REACTIONS (10)
  - Abdominal pain [Not Recovered/Not Resolved]
  - Asthenia [Not Recovered/Not Resolved]
  - Colitis ulcerative [Not Recovered/Not Resolved]
  - Defaecation urgency [Not Recovered/Not Resolved]
  - Diarrhoea [Not Recovered/Not Resolved]
  - Mucous stools [Not Recovered/Not Resolved]
  - Ophthalmic migraine [Not Recovered/Not Resolved]
  - Photophobia [Not Recovered/Not Resolved]
  - Drug ineffective [Unknown]
  - Migraine with aura [Not Recovered/Not Resolved]
